FAERS Safety Report 23362840 (Version 1)
Quarter: 2024Q1

REPORT INFORMATION
  Report Type: Spontaneous
  Country: US (occurrence: None)
  Receive Date: 20240103
  Receipt Date: 20240103
  Transmission Date: 20240410
  Serious: No
  Sender: FDA-Public Use
  Company Number: None

PATIENT
  Age: 85 Year
  Sex: Male

DRUGS (1)
  1. ERIVEDGE [Suspect]
     Active Substance: VISMODEGIB
     Indication: Basal cell carcinoma
     Dosage: OTHER QUANTITY : TAKE 1 CAPSULE;?FREQUENCY : DAILY;?
     Route: 048
     Dates: start: 202302

REACTIONS (3)
  - Fall [None]
  - Cerebral haemorrhage [None]
  - Therapy interrupted [None]
